FAERS Safety Report 15843637 (Version 2)
Quarter: 2022Q2

REPORT INFORMATION
  Report Type: Spontaneous
  Country: JP (occurrence: JP)
  Receive Date: 20190118
  Receipt Date: 20220623
  Transmission Date: 20220720
  Serious: Yes (Hospitalization)
  Sender: FDA-Public Use
  Company Number: JP-TEVA-2019-JP-1000870

PATIENT
  Age: 79 Year
  Sex: Female
  Weight: 50.6 kg

DRUGS (3)
  1. CILOSTAZOL [Suspect]
     Active Substance: CILOSTAZOL
     Indication: Anticoagulant therapy
     Route: 065
  2. HEPARIN [Suspect]
     Active Substance: HEPARIN SODIUM
     Indication: Anticoagulant therapy
     Dosage: 15000UNITS/DAY; STARTED AT SIX DAYS PRIOR TO TOTAL HIP REPLACEMENT AND STOPPED NINE HOURS PRIOR T...
     Route: 041
  3. TICLOPIDINE HYDROCHLORIDE [Suspect]
     Active Substance: TICLOPIDINE HYDROCHLORIDE
     Indication: Anticoagulant therapy
     Route: 065

REACTIONS (3)
  - Haematoma muscle [Recovered/Resolved]
  - Haemorrhage [Recovered/Resolved]
  - Blood pressure decreased [Recovered/Resolved]
